FAERS Safety Report 14077534 (Version 1)
Quarter: 2017Q4

REPORT INFORMATION
  Report Type: Spontaneous
  Country: US (occurrence: US)
  Receive Date: 20171012
  Receipt Date: 20171012
  Transmission Date: 20180321
  Serious: No
  Sender: FDA-Public Use
  Company Number: US-ASTRAZENECA-2017SF03950

PATIENT
  Sex: Female

DRUGS (1)
  1. TUDORZA PRESSAIR [Suspect]
     Active Substance: ACLIDINIUM BROMIDE
     Indication: ASTHMA
     Route: 055

REACTIONS (6)
  - Dyspnoea [Unknown]
  - Intentional device misuse [Unknown]
  - Off label use [Unknown]
  - Drug ineffective [Unknown]
  - Product quality issue [Unknown]
  - Product use in unapproved indication [Unknown]
